FAERS Safety Report 7141062-0 (Version None)
Quarter: 2010Q4

REPORT INFORMATION
  Report Type: 
  Country: None (occurrence: None)
  Receive Date: 20101122
  Receipt Date: 20101109
  Transmission Date: 20110411
  Serious: Yes (Congenital Anomaly, Other)
  Sender: FDA-Public Use
  Company Number: GB-ACCORD-006698

PATIENT

DRUGS (1)
  1. TOPIRAMATE [Suspect]
     Dosage: TRANSPLANCENTAL
     Route: 064

REACTIONS (2)
  - FOETAL MALFORMATION [None]
  - MATERNAL DRUGS AFFECTING FOETUS [None]
